FAERS Safety Report 14521547 (Version 1)
Quarter: 2018Q1

REPORT INFORMATION
  Report Type: Spontaneous
  Country: US (occurrence: US)
  Receive Date: 20180212
  Receipt Date: 20180212
  Transmission Date: 20180509
  Serious: Yes (Hospitalization, Other)
  Sender: FDA-Public Use
  Company Number: US-AMAG PHARMACEUTICALS, INC.-AMAG201703531

PATIENT

DRUGS (8)
  1. GUAIFENESIN. [Concomitant]
     Active Substance: GUAIFENESIN
     Indication: COUGH
     Dosage: 200 MG, Q6H, PRN
     Route: 065
     Dates: start: 20171024
  2. LABETALOL [Concomitant]
     Active Substance: LABETALOL\LABETALOL HYDROCHLORIDE
     Indication: BLOOD PRESSURE INCREASED
     Dosage: 100 MG, BID
     Route: 065
     Dates: start: 20170920, end: 20171017
  3. ZANTAC [Concomitant]
     Active Substance: RANITIDINE HYDROCHLORIDE
     Indication: DYSPEPSIA
     Dosage: 150 MG, BID
     Route: 065
     Dates: start: 20170626, end: 20170912
  4. PROMETHAZINE [Concomitant]
     Active Substance: PROMETHAZINE\PROMETHAZINE HYDROCHLORIDE
     Indication: HEADACHE
     Dosage: 25 MG, 4-6 TIMES/DAY, PRN
     Route: 065
     Dates: start: 20170824, end: 20170906
  5. AMOXICILLIN. [Concomitant]
     Active Substance: AMOXICILLIN
     Indication: TOOTH DISORDER
     Dosage: 500 MG, TID
     Route: 065
     Dates: start: 20171004, end: 20171024
  6. ZITHROMAX [Concomitant]
     Active Substance: AZITHROMYCIN DIHYDRATE
     Indication: BRONCHITIS
     Dosage: UNK
     Route: 065
     Dates: start: 20171024
  7. MAKENA [Suspect]
     Active Substance: HYDROXYPROGESTERONE CAPROATE
     Indication: PREMATURE DELIVERY
     Dosage: 250 MG/ML, WEEKLY
     Route: 030
     Dates: start: 20170808, end: 20171024
  8. CLINDAMYCIN. [Concomitant]
     Active Substance: CLINDAMYCIN
     Indication: DENTAL OPERATION
     Dosage: 300 MG, TID
     Route: 065
     Dates: start: 20171020, end: 20171024

REACTIONS (5)
  - Dyspnoea [Unknown]
  - Premature delivery [Recovered/Resolved]
  - Drug dose omission [Unknown]
  - Pre-eclampsia [Unknown]
  - Hypertension [Unknown]

NARRATIVE: CASE EVENT DATE: 20171031
